FAERS Safety Report 24670172 (Version 1)
Quarter: 2024Q4

REPORT INFORMATION
  Report Type: Report from Study
  Country: US (occurrence: US)
  Receive Date: 20241127
  Receipt Date: 20241127
  Transmission Date: 20250114
  Serious: Yes (Other)
  Sender: ABBVIE
  Company Number: US-ABBVIE-6013897

PATIENT
  Sex: Female

DRUGS (1)
  1. RISANKIZUMAB [Suspect]
     Active Substance: RISANKIZUMAB
     Indication: Psoriasis
     Route: 058

REACTIONS (6)
  - Skin cancer [Unknown]
  - Psoriasis [Unknown]
  - Stress [Unknown]
  - Infection [Unknown]
  - Irritable bowel syndrome [Unknown]
  - Multiple allergies [Unknown]
